FAERS Safety Report 10065128 (Version 1)
Quarter: 2014Q1

REPORT INFORMATION
  Report Type: Spontaneous
  Country: US (occurrence: None)
  Receive Date: 20140328
  Receipt Date: 20140328
  Transmission Date: 20141002
  Serious: No
  Sender: FDA-Public Use
  Company Number: 1000054683

PATIENT
  Age: 64 Year
  Sex: Female

DRUGS (6)
  1. LINZESS [Suspect]
     Indication: CONSTIPATION
     Dosage: 145MCG (145 MCG, 1 IN 1 D), ORAL
     Route: 048
     Dates: start: 20140223
  2. TRIAMTERENE/HYDROCHLOROTHIAZIDE (TRIAMTERENE/HYDROCHLOROTHIAZIDE) (TRIAMTERENE/HYDROCHLOROTHIAZIDE) [Concomitant]
  3. PRAMIPEXOLE (PRAMIPEXOLE) (PRAMIPEXOLE) [Concomitant]
  4. VIT D3 (COLECALCIFEROL) (COLECALCIFEROL) [Concomitant]
  5. HYDROCODONE (HYDROCODONE) (HYDROCODONE) [Concomitant]
  6. CHLORZOXAZONE (CHLORZOXAZONE) (CHLORZOXAZONE) [Concomitant]

REACTIONS (1)
  - Drug ineffective [None]
